FAERS Safety Report 23825636 (Version 2)
Quarter: 2024Q2

REPORT INFORMATION
  Report Type: Spontaneous
  Country: CN (occurrence: CN)
  Receive Date: 20240507
  Receipt Date: 20240509
  Transmission Date: 20240716
  Serious: Yes (Hospitalization, Other)
  Sender: FDA-Public Use
  Company Number: CN-PFIZER INC-202400100117

PATIENT
  Age: 85 Year
  Sex: Female

DRUGS (1)
  1. LINEZOLID [Suspect]
     Active Substance: LINEZOLID
     Indication: Skin ulcer
     Dosage: 0.6 G, 2X/DAY, IVGTT Q12H
     Route: 042

REACTIONS (4)
  - Antibiotic level above therapeutic [Recovered/Resolved]
  - Serotonin syndrome [Recovered/Resolved]
  - Hyperlactacidaemia [Recovered/Resolved]
  - Thrombocytopenia [Recovered/Resolved]
